FAERS Safety Report 7039607-4 (Version None)
Quarter: 2010Q4

REPORT INFORMATION
  Report Type: 
  Country: None (occurrence: None)
  Receive Date: 20101012
  Receipt Date: 20101005
  Transmission Date: 20110411
  Serious: Yes (Hospitalization)
  Sender: FDA-Public Use
  Company Number: A0873451A

PATIENT
  Sex: Male

DRUGS (8)
  1. CARVEDILOL [Suspect]
     Dosage: 6.25MG THREE TIMES PER DAY
     Route: 048
     Dates: start: 20100617
  2. COREG [Suspect]
     Dosage: 25MG TWICE PER DAY
     Route: 048
     Dates: start: 20100101
  3. HUMULIN INSULIN [Concomitant]
  4. ZOCOR [Concomitant]
  5. NEXIUM [Concomitant]
  6. XALATAN [Concomitant]
  7. ALPHAGAN [Concomitant]
  8. DIAVAN [Concomitant]

REACTIONS (5)
  - CARDIAC FAILURE CONGESTIVE [None]
  - COUGH [None]
  - FATIGUE [None]
  - JOINT SWELLING [None]
  - PNEUMONIA [None]
